FAERS Safety Report 4614871-7 (Version None)
Quarter: 2005Q1

REPORT INFORMATION
  Report Type: 
  Country: None (occurrence: None)
  Receive Date: 20050318
  Receipt Date: 20050318
  Transmission Date: 20050727
  Serious: No
  Sender: FDA-Public Use
  Company Number: None

PATIENT

DRUGS (1)
  1. MIRALAX [Suspect]

REACTIONS (9)
  - ABDOMINAL PAIN [None]
  - BURNING SENSATION [None]
  - CARDIAC DISORDER [None]
  - CHOLECYSTITIS [None]
  - DIARRHOEA HAEMORRHAGIC [None]
  - DYSPEPSIA [None]
  - GASTROINTESTINAL PAIN [None]
  - PHARMACEUTICAL PRODUCT COMPLAINT [None]
  - THROAT IRRITATION [None]
